FAERS Safety Report 4540839-5 (Version None)
Quarter: 2004Q4

REPORT INFORMATION
  Report Type: 
  Country: None (occurrence: None)
  Receive Date: 20041229
  Receipt Date: 20041028
  Transmission Date: 20050328
  Serious: Yes (Life-Threatening)
  Sender: FDA-Public Use
  Company Number: DE-MERCK-0411DEU00272

PATIENT
  Age: 71 Year
  Sex: Female
  Weight: 56 kg

DRUGS (6)
  1. VIOXX [Suspect]
     Indication: FIBROMYALGIA
     Route: 048
     Dates: start: 20040729, end: 20040101
  2. SILIBININ [Concomitant]
     Indication: CHOLANGITIS
     Route: 048
  3. CYNARA [Concomitant]
     Indication: CHOLANGITIS
     Route: 048
  4. URSODIOL [Concomitant]
     Indication: CHOLANGITIS
     Route: 048
  5. CRATAEGUS [Concomitant]
     Indication: MYOCARDITIS
     Route: 048
  6. GINKGO BILOBA EXTRACT [Concomitant]
     Indication: MYOCARDITIS
     Route: 048

REACTIONS (7)
  - ALOPECIA [None]
  - ANGINA PECTORIS [None]
  - ARRHYTHMIA [None]
  - CARDIAC FAILURE [None]
  - DYSPNOEA [None]
  - OEDEMA [None]
  - VISUAL ACUITY REDUCED [None]
